FAERS Safety Report 16327393 (Version 9)
Quarter: 2021Q1

REPORT INFORMATION
  Report Type: Report from Study
  Country: DE (occurrence: DE)
  Receive Date: 20190517
  Receipt Date: 20210331
  Transmission Date: 20210419
  Serious: Yes (Hospitalization, Other)
  Sender: FDA-Public Use
  Company Number: DE-PURDUE PHARMA-GBR-2019-0066521

PATIENT
  Age: 76 Year
  Sex: Male

DRUGS (93)
  1. PREDNISOLONE. [Concomitant]
     Active Substance: PREDNISOLONE
     Indication: PRODUCT USED FOR UNKNOWN INDICATION
     Dosage: 20 MG, UNK
     Route: 065
  2. PREDNISOLONE. [Concomitant]
     Active Substance: PREDNISOLONE
     Dosage: REDUCING (FIRST DAY 1 MG, 2ND DAY 2 MG)
     Route: 065
  3. PREDNISOLONE. [Concomitant]
     Active Substance: PREDNISOLONE
     Dosage: UNK [REDUCING (FIRST DAY 1 MG, 2ND DAY 2 MG)]
  4. PANTOPRAZOLE [Concomitant]
     Active Substance: PANTOPRAZOLE
     Dosage: 20 MG, DAILY [0?0?1]
  5. CANDESARTAN. [Concomitant]
     Active Substance: CANDESARTAN
     Dosage: 16 MG, DAILY
  6. FOLIC ACID. [Concomitant]
     Active Substance: FOLIC ACID
     Dosage: 5 MG, BIW [FREQUENCY REPORTED AS 0.5 WEEK, 10MG PER WEEK]
     Route: 065
  7. PREGABALIN. [Concomitant]
     Active Substance: PREGABALIN
     Dosage: 25 MG, UNK
     Route: 065
  8. PREGABALIN. [Concomitant]
     Active Substance: PREGABALIN
     Dosage: 150 MG, DAILY
  9. PREGABALIN. [Concomitant]
     Active Substance: PREGABALIN
     Dosage: 25 MG, UNK
     Route: 065
  10. DEKRISTOL [Concomitant]
     Active Substance: CHOLECALCIFEROL
     Route: 065
  11. METHOTREXATE. [Concomitant]
     Active Substance: METHOTREXATE
     Indication: PRODUCT USED FOR UNKNOWN INDICATION
     Dosage: UNK, WEEKLY ( ONE UNKNOWN UNIT, PER WEEK)
     Route: 058
  12. METHOTREXATE. [Concomitant]
     Active Substance: METHOTREXATE
     Dosage: UNK, WEEKLY [ONE UNKNOWN UNIT, PER WEEK]
  13. NORSPAN [Suspect]
     Active Substance: BUPRENORPHINE
     Dosage: 0.2 MG, UNK (C?NORSPAN?OPIOID)
     Route: 060
  14. ASPIRIN. [Concomitant]
     Active Substance: ASPIRIN
     Indication: PRODUCT USED FOR UNKNOWN INDICATION
     Dosage: UNK
     Route: 065
  15. ASPIRIN. [Concomitant]
     Active Substance: ASPIRIN
     Dosage: UNK [100 UNIT NOT REPORTED]
  16. CANDESARTAN. [Concomitant]
     Active Substance: CANDESARTAN
     Indication: PRODUCT USED FOR UNKNOWN INDICATION
     Dosage: 8 MG, UNK (FREQUENCY REPORTED AS 0.5 DAYS) (16 MG, DAILY (1?0?1))
     Route: 065
  17. METOPROLOL SUCCINATE. [Concomitant]
     Active Substance: METOPROLOL SUCCINATE
     Indication: PRODUCT USED FOR UNKNOWN INDICATION
     Dosage: 95 MG, DAILY (95MG PER DAY) (1?0?0)
     Route: 065
  18. METOPROLOL SUCCINATE. [Concomitant]
     Active Substance: METOPROLOL SUCCINATE
     Dosage: 95 MG, DAILY [95MG PER DAY 1?0?0]
  19. FOLIC ACID. [Concomitant]
     Active Substance: FOLIC ACID
     Dosage: 5 MG, BIW [FREQUENCY REPORTED AS 0.5 WEEK, 10MG PER WEEK]
     Route: 065
  20. PREGABALIN. [Concomitant]
     Active Substance: PREGABALIN
     Dosage: 25 MG, UNK
     Route: 065
  21. PREGABALIN. [Concomitant]
     Active Substance: PREGABALIN
     Dosage: 75 MG, UNK [FREQUENCY REPORTED AS 0.5 DAY, 150 MG PER DAY]
  22. TORASEMIDE [Concomitant]
     Active Substance: TORSEMIDE
     Indication: PRODUCT USED FOR UNKNOWN INDICATION
     Dosage: 10 MG, DAILY
     Route: 065
  23. DEKRISTOL [Concomitant]
     Active Substance: CHOLECALCIFEROL
     Indication: PRODUCT USED FOR UNKNOWN INDICATION
     Dosage: 20000 IU, WEEKLY (20000 IU PER WEEK)
     Route: 065
  24. METHOTREXATE. [Concomitant]
     Active Substance: METHOTREXATE
     Dosage: UNK, WEEKLY [ONE UNKNOWN UNIT, PER WEEK]
  25. NORSPAN [Suspect]
     Active Substance: BUPRENORPHINE
     Dosage: 0.2 MG, UNK (C?NORSPAN?OPIOID)
     Route: 060
  26. NORSPAN [Suspect]
     Active Substance: BUPRENORPHINE
     Dosage: 0.2 MG, UNK
     Route: 060
  27. NORSPAN [Suspect]
     Active Substance: BUPRENORPHINE
     Dosage: 0.2 MG, UNK
     Route: 060
  28. ASPIRIN. [Concomitant]
     Active Substance: ASPIRIN
     Dosage: UNK [100 UNIT NOT REPORTED]
  29. PREDNISOLONE. [Concomitant]
     Active Substance: PREDNISOLONE
     Dosage: 20 MG, UNK, REDUCING (FIRST DAY 1MG, 2ND DAY 2MG)
  30. PANTOPRAZOLE [Concomitant]
     Active Substance: PANTOPRAZOLE
     Dosage: 20 MG, DAILY [0?0?1]
  31. CANDESARTAN. [Concomitant]
     Active Substance: CANDESARTAN
     Dosage: 16 MG, DAILY (16MG PER DAY)
     Route: 065
  32. FOLIC ACID. [Concomitant]
     Active Substance: FOLIC ACID
     Indication: PRODUCT USED FOR UNKNOWN INDICATION
     Dosage: 5 MG, UNK (FREQUENCY REPORTED AS 0.5 WEEK) (10MG PER WEEK)
  33. FOLIC ACID. [Concomitant]
     Active Substance: FOLIC ACID
     Route: 065
  34. SIMVASTATIN. [Concomitant]
     Active Substance: SIMVASTATIN
     Dosage: 40 MG, DAILY (0?0?1)
  35. CORTISONE [Concomitant]
     Active Substance: CORTISONE
     Dosage: 2 MG, UNK (3MG, UNK)
     Route: 065
  36. CORTISONE [Concomitant]
     Active Substance: CORTISONE
     Dosage: 2 MG, UNK [3MG, UNK]
  37. CORTISONE [Concomitant]
     Active Substance: CORTISONE
     Route: 065
  38. CORTISONE [Concomitant]
     Active Substance: CORTISONE
     Dosage: 3 MG, UNK [2MG, UNK]
  39. EPLERENONA [Concomitant]
     Active Substance: EPLERENONE
     Indication: PRODUCT USED FOR UNKNOWN INDICATION
     Dosage: 25 MG, DAILY (25MG PER DAY)
     Route: 065
  40. NORSPAN [Suspect]
     Active Substance: BUPRENORPHINE
     Indication: PAIN
     Dosage: 0.2 MG, UNK (C?NORSPAN?OPIOID)
     Route: 060
  41. DIGIMED [Concomitant]
     Active Substance: DIGOXIN
     Indication: PRODUCT USED FOR UNKNOWN INDICATION
     Dosage: 0.1 MG, UNK
     Route: 065
  42. ALENDRONIC ACID [Concomitant]
     Active Substance: ALENDRONIC ACID
     Indication: PRODUCT USED FOR UNKNOWN INDICATION
     Dosage: UNK, WEEKLY
     Route: 065
  43. PREDNISOLONE. [Concomitant]
     Active Substance: PREDNISOLONE
     Dosage: UNK [REDUCING (FIRST DAY 1 MG, 2ND DAY 2 MG)]
  44. PREDNISOLONE. [Concomitant]
     Active Substance: PREDNISOLONE
     Route: 065
  45. METOPROLOL SUCCINATE. [Concomitant]
     Active Substance: METOPROLOL SUCCINATE
     Dosage: 95 MG, DAILY [95MG PER DAY 1?0?0]
  46. FOLIC ACID. [Concomitant]
     Active Substance: FOLIC ACID
     Route: 065
  47. SIMVASTATIN. [Concomitant]
     Active Substance: SIMVASTATIN
     Indication: PRODUCT USED FOR UNKNOWN INDICATION
     Dosage: 40 MG, DAILY (40MG PER DAY) (0?0?1)
     Route: 065
  48. CORTISONE [Concomitant]
     Active Substance: CORTISONE
     Dosage: 2 MG, UNK [3MG, UNK]
  49. PREGABALIN. [Concomitant]
     Active Substance: PREGABALIN
     Dosage: 75 MG, UNK [FREQUENCY REPORTED AS 0.5 DAY, 150 MG PER DAY]
  50. PREGABALIN. [Concomitant]
     Active Substance: PREGABALIN
     Dosage: 75 MG, UNK [FREQUENCY REPORTED AS 0.5 DAY, 150 MG PER DAY]
  51. DEKRISTOL [Concomitant]
     Active Substance: CHOLECALCIFEROL
     Dosage: 20000 IU, [14 DAY]
  52. ASPIRIN. [Concomitant]
     Active Substance: ASPIRIN
     Dosage: UNK [100 UNIT NOT REPORTED]
  53. PANTOPRAZOLE [Concomitant]
     Active Substance: PANTOPRAZOLE
     Dosage: 20 MG, DAILY [0?0?1]
  54. CANDESARTAN. [Concomitant]
     Active Substance: CANDESARTAN
     Dosage: 8 MG, BID [8 MG, TWICE [1?0?1]]]
  55. SIMVASTATIN. [Concomitant]
     Active Substance: SIMVASTATIN
     Dosage: 40 MG, DAILY (0?0?1)
  56. NITROLINGUAL [Concomitant]
     Active Substance: NITROGLYCERIN
     Indication: PRODUCT USED FOR UNKNOWN INDICATION
     Dosage: UNK
     Route: 065
  57. NORSPAN [Suspect]
     Active Substance: BUPRENORPHINE
     Dosage: 0.2 MG, UNK
     Route: 060
  58. ROACTEMRA [Suspect]
     Active Substance: TOCILIZUMAB
     Indication: RHEUMATOID ARTHRITIS
     Dosage: 162 MG EVERY 14 DAYS [162 MG PER WEEK, SOLUTION FOR INJECTION IN PRE?FILLLED SYRINGE (23.166 MG)]
     Route: 058
     Dates: start: 20160920
  59. ROACTEMRA [Suspect]
     Active Substance: TOCILIZUMAB
     Indication: GIANT CELL ARTERITIS
     Dosage: UNK
     Route: 065
  60. ROACTEMRA [Suspect]
     Active Substance: TOCILIZUMAB
     Dosage: UNK
     Route: 058
  61. PREDNISOLONE. [Concomitant]
     Active Substance: PREDNISOLONE
     Dosage: REDUCING (FIRST DAY 1 MG, 2ND DAY 2 MG)
     Route: 065
  62. CANDESARTAN. [Concomitant]
     Active Substance: CANDESARTAN
     Dosage: 8 MG, UNK (FREQUENCY REPORTED AS 0.5 DAY)
  63. CANDESARTAN. [Concomitant]
     Active Substance: CANDESARTAN
     Route: 065
  64. SIMVASTATIN. [Concomitant]
     Active Substance: SIMVASTATIN
     Dosage: 40 MG, DAILY (0?0?1)
  65. CORTISONE [Concomitant]
     Active Substance: CORTISONE
     Dosage: 3 MG, UNK [2MG, UNK]
  66. PREGABALIN. [Concomitant]
     Active Substance: PREGABALIN
     Indication: PRODUCT USED FOR UNKNOWN INDICATION
     Dosage: 75 MG, UNK (FREQUENCY REPORTED AS 0.5 DAY) (150 MG PER DAY)
     Route: 065
  67. DEKRISTOL [Concomitant]
     Active Substance: CHOLECALCIFEROL
     Dosage: 20000 IU, [14 DAY]
  68. DEKRISTOL [Concomitant]
     Active Substance: CHOLECALCIFEROL
     Dosage: 20000 IU, [14 DAY]
  69. METHOTREXATE. [Concomitant]
     Active Substance: METHOTREXATE
     Dosage: UNK, WEEKLY [ONE UNKNOWN UNIT, PER WEEK]
  70. EPLERENONA [Concomitant]
     Active Substance: EPLERENONE
     Dosage: 25 MG, DAILY [25MG PER DAY]
  71. EPLERENONA [Concomitant]
     Active Substance: EPLERENONE
     Dosage: 25 MG, DAILY [25MG PER DAY]
  72. PREDNISOLONE. [Concomitant]
     Active Substance: PREDNISOLONE
     Dosage: 20 MG, UNK, REDUCING (FIRST DAY 1MG, 2ND DAY 2MG)
  73. PREDNISOLONE. [Concomitant]
     Active Substance: PREDNISOLONE
     Dosage: 20 MG, UNK, [REDUCING (FIRST DAY 1MG, 2ND DAY 2MG)]
  74. CANDESARTAN. [Concomitant]
     Active Substance: CANDESARTAN
     Dosage: 8 MG, DAILY [1?0?1]
  75. CORTISONE [Concomitant]
     Active Substance: CORTISONE
     Indication: PRODUCT USED FOR UNKNOWN INDICATION
     Dosage: 3 MG, UNK (2MG, UNK)
     Route: 065
  76. CORTISONE [Concomitant]
     Active Substance: CORTISONE
     Dosage: 3 MG, UNK [2MG, UNK]
  77. EPLERENONA [Concomitant]
     Active Substance: EPLERENONE
     Dosage: 25 MG, DAILY [25MG PER DAY]
  78. PREDNISOLONE. [Concomitant]
     Active Substance: PREDNISOLONE
     Dosage: 20 MG, UNK, [REDUCING (FIRST DAY 1MG, 2ND DAY 2MG)]
  79. PREDNISOLONE. [Concomitant]
     Active Substance: PREDNISOLONE
     Dosage: 20 MG, UNK, [REDUCING (FIRST DAY 1MG, 2ND DAY 2MG)]
  80. PANTOPRAZOLE [Concomitant]
     Active Substance: PANTOPRAZOLE
     Indication: PRODUCT USED FOR UNKNOWN INDICATION
     Dosage: 20 MG, DAILY (0?0?1)
     Route: 065
  81. DICLOFENAC [Concomitant]
     Active Substance: DICLOFENAC
     Indication: PRODUCT USED FOR UNKNOWN INDICATION
     Dosage: UNK
     Route: 065
  82. CANDESARTAN. [Concomitant]
     Active Substance: CANDESARTAN
     Dosage: 8 MG, UNK (FREQUENCY REPORTED AS 0.5 DAY)
  83. CANDESARTAN. [Concomitant]
     Active Substance: CANDESARTAN
     Dosage: 16 MG, DAILY (16MG PER DAY)
     Route: 065
  84. CANDESARTAN. [Concomitant]
     Active Substance: CANDESARTAN
     Dosage: 8 MG, BID [8 MG, TWICE [1?0?1]]]
  85. CANDESARTAN. [Concomitant]
     Active Substance: CANDESARTAN
     Dosage: 16 MG, DAILY
  86. METOPROLOL SUCCINATE. [Concomitant]
     Active Substance: METOPROLOL SUCCINATE
     Dosage: 95 MG, DAILY [95MG PER DAY 1?0?0]
  87. FOLIC ACID. [Concomitant]
     Active Substance: FOLIC ACID
     Dosage: 5 MG, UNK [FREQUENCY REPORTED AS 0.5 WEEK, 10MG PER WEEK]
     Route: 065
  88. ARCOXIA [Concomitant]
     Active Substance: ETORICOXIB
     Indication: PAIN
     Dosage: 60 MG, UNK
     Route: 065
  89. PREGABALIN. [Concomitant]
     Active Substance: PREGABALIN
     Dosage: 150 MG, DAILY
     Route: 065
  90. PREGABALIN. [Concomitant]
     Active Substance: PREGABALIN
     Dosage: 150 MG, DAILY
  91. DEKRISTOL [Concomitant]
     Active Substance: CHOLECALCIFEROL
     Dosage: 20000 IU, (EVERY 14 DAYS)
     Route: 065
  92. DEKRISTOL [Concomitant]
     Active Substance: CHOLECALCIFEROL
     Dosage: 20000 IU, [14 DAY]
  93. DEKRISTOL [Concomitant]
     Active Substance: CHOLECALCIFEROL
     Dosage: 20000 IU, [14 DAY]

REACTIONS (36)
  - Sensory disturbance [Not Recovered/Not Resolved]
  - Diarrhoea [Recovered/Resolved]
  - Cerebral atrophy [Not Recovered/Not Resolved]
  - Mitral valve incompetence [Not Recovered/Not Resolved]
  - Off label use [Unknown]
  - Ear neoplasm malignant [Recovering/Resolving]
  - Pain in jaw [Recovered/Resolved]
  - Ear pain [Recovered/Resolved]
  - Food poisoning [Not Recovered/Not Resolved]
  - Arthropathy [Not Recovered/Not Resolved]
  - Pain [Recovered/Resolved]
  - Polyneuropathy [Recovering/Resolving]
  - Nasopharyngitis [Unknown]
  - Influenza [Unknown]
  - Rheumatoid arthritis [Recovered/Resolved]
  - Intentional product use issue [Unknown]
  - Dizziness [Unknown]
  - Erythema [Not Recovered/Not Resolved]
  - Burning sensation [Recovering/Resolving]
  - Aortic valve prolapse [Unknown]
  - Fibromatosis [Recovered/Resolved]
  - Hypoaesthesia [Recovered/Resolved]
  - Fatigue [Recovering/Resolving]
  - Pancreatic failure [Recovered/Resolved]
  - Dyspnoea [Recovered/Resolved]
  - Aortic valve incompetence [Recovered/Resolved]
  - Tongue pigmentation [Not Recovered/Not Resolved]
  - Injection site swelling [Recovered/Resolved]
  - Paraesthesia oral [Not Recovered/Not Resolved]
  - Gout [Recovered/Resolved]
  - Bowen^s disease [Unknown]
  - Staphylococcal infection [Unknown]
  - Rhinorrhoea [Recovered/Resolved]
  - Dry skin [Not Recovered/Not Resolved]
  - Erythema [Recovering/Resolving]
  - Muscular weakness [Not Recovered/Not Resolved]

NARRATIVE: CASE EVENT DATE: 2017
